FAERS Safety Report 23448636 (Version 1)
Quarter: 2024Q1

REPORT INFORMATION
  Report Type: Spontaneous
  Country: US (occurrence: US)
  Receive Date: 20240127
  Receipt Date: 20240127
  Transmission Date: 20240409
  Serious: No
  Sender: FDA-Public Use
  Company Number: US-TARSUS PHARMACEUTICALS-TSP-US-2023-000058

PATIENT
  Age: 66 Year
  Sex: Female

DRUGS (5)
  1. XDEMVY [Suspect]
     Active Substance: LOTILANER
     Indication: Arthropod infestation
     Dosage: 1 DROP, BID (1 DROP ON EACH EYE 12 HOURS APAR)
     Route: 047
     Dates: start: 20231120, end: 20231128
  2. CEPHALEXIN [Concomitant]
     Active Substance: CEPHALEXIN
     Indication: Eye infection
     Dosage: 500 MILLIGRAM
     Route: 065
  3. ESTRADIOL [Concomitant]
     Active Substance: ESTRADIOL
     Indication: Product used for unknown indication
     Dosage: UNK
     Route: 065
  4. PROGESTERONE [Concomitant]
     Active Substance: PROGESTERONE
     Indication: Product used for unknown indication
     Dosage: UNK
     Route: 065
  5. NP THYROID [Concomitant]
     Active Substance: LEVOTHYROXINE\LIOTHYRONINE
     Indication: Product used for unknown indication
     Dosage: UNK
     Route: 065

REACTIONS (6)
  - Rash [Not Recovered/Not Resolved]
  - Burning sensation [Unknown]
  - Pain [Unknown]
  - Ocular hyperaemia [Unknown]
  - Pseudofolliculitis [Unknown]
  - Pruritus [Unknown]

NARRATIVE: CASE EVENT DATE: 20231126
